FAERS Safety Report 4746420-7 (Version None)
Quarter: 2005Q3

REPORT INFORMATION
  Report Type: 
  Country: None (occurrence: None)
  Receive Date: 20050815
  Receipt Date: 20050801
  Transmission Date: 20060218
  Serious: Yes (Hospitalization)
  Sender: FDA-Public Use
  Company Number: US_0507119685

PATIENT
  Age: 57 Year
  Sex: Male

DRUGS (8)
  1. ALIMTA [Suspect]
     Indication: MALIGNANT NEOPLASM PROGRESSION
     Dosage: 750 MG OTHER
     Dates: start: 20050616, end: 20050616
  2. ALIMTA [Suspect]
     Indication: PANCREATIC CARCINOMA
     Dosage: 750 MG OTHER
     Dates: start: 20050616, end: 20050616
  3. VITAMIN B-12 [Concomitant]
  4. FOLIC ACID [Concomitant]
  5. DEXAMETHASONE [Concomitant]
  6. MORPHINE [Concomitant]
  7. GABAPENTIN [Concomitant]
  8. GATIFLOXACIN [Concomitant]

REACTIONS (12)
  - ACUTE PULMONARY OEDEMA [None]
  - BLOOD PH DECREASED [None]
  - BLOOD PRESSURE DECREASED [None]
  - BLOOD SODIUM DECREASED [None]
  - DIALYSIS [None]
  - DISORIENTATION [None]
  - HAEMATOCRIT DECREASED [None]
  - HAEMOGLOBIN DECREASED [None]
  - LEUKOPENIA [None]
  - OLIGURIA [None]
  - PO2 DECREASED [None]
  - RENAL FAILURE [None]
